FAERS Safety Report 8778961 (Version 1)
Quarter: 2012Q4

REPORT INFORMATION
  Report Type: 
  Country: US (occurrence: US)
  Receive Date: 20120912
  Receipt Date: 20120912
  Transmission Date: 20130627
  Serious: Yes (Other)
  Sender: FDA-Public Use
  Company Number: PHEH2012US017377

PATIENT
  Sex: Female

DRUGS (6)
  1. DIOVAN HCT [Suspect]
     Indication: HYPERTENSION
     Dosage: 1 DF, QD (160/12.5 mg)
     Route: 048
  2. CELEBREX [Concomitant]
     Dosage: UNK UKN, UNK
  3. CYMBALTA [Concomitant]
     Dosage: UNK UKN, UNK
  4. PREVACID [Concomitant]
     Dosage: UNK UKN, UNK
  5. LORAZEPAM [Concomitant]
     Dosage: UNK UKN, UNK
  6. HUMIRA [Concomitant]
     Dosage: UNK UKN, UNK

REACTIONS (2)
  - Crohn^s disease [Unknown]
  - Rheumatoid arthritis [Unknown]
